FAERS Safety Report 7473535-5 (Version None)
Quarter: 2011Q2

REPORT INFORMATION
  Report Type: 
  Country: None (occurrence: None)
  Receive Date: 20110511
  Receipt Date: 20091119
  Transmission Date: 20111010
  Serious: Yes (Other)
  Sender: FDA-Public Use
  Company Number: DE-GENENTECH-318222

PATIENT
  Age: 77 Year
  Sex: Female

DRUGS (1)
  1. LUCENTIS [Suspect]
     Indication: AGE-RELATED MACULAR DEGENERATION
     Dosage: UNK
     Route: 031
     Dates: start: 20091001

REACTIONS (11)
  - NASAL OEDEMA [None]
  - DEPRESSION [None]
  - LACRIMATION INCREASED [None]
  - NASAL CONGESTION [None]
  - NASAL TURBINATE ABNORMALITY [None]
  - BURNING SENSATION [None]
  - VISUAL ACUITY REDUCED [None]
  - NASOPHARYNGITIS [None]
  - MALAISE [None]
  - TREMOR [None]
  - DYSPNOEA [None]
